FAERS Safety Report 20026128 (Version 3)
Quarter: 2021Q4

REPORT INFORMATION
  Report Type: Spontaneous
  Country: US (occurrence: US)
  Receive Date: 20211102
  Receipt Date: 20211118
  Transmission Date: 20220303
  Serious: Yes (Disabling, Other)
  Sender: FDA-Public Use
  Company Number: US-009507513-2110USA008004

PATIENT
  Age: 73 Year
  Sex: Female

DRUGS (4)
  1. KEYTRUDA [Suspect]
     Active Substance: PEMBROLIZUMAB
     Indication: Metastatic malignant melanoma
     Dosage: 200 MILLIGRAM, Q3W
     Dates: start: 2018, end: 201907
  2. BACLOFEN [Concomitant]
     Active Substance: BACLOFEN
     Indication: Sensorimotor disorder
     Dosage: 10 MILLIGRAM, TWICE DAILY
  3. PAROXETINE [Concomitant]
     Active Substance: PAROXETINE
     Indication: Sensorimotor disorder
     Dosage: 40 MILLIGRAM, DAILY
  4. GABAPENTIN [Concomitant]
     Active Substance: GABAPENTIN
     Indication: Sensorimotor disorder
     Dosage: 300 MILLIGRAM, THREE TIMES DAILY

REACTIONS (2)
  - Multiple sclerosis relapse [Not Recovered/Not Resolved]
  - Immune-mediated hepatitis [Not Recovered/Not Resolved]

NARRATIVE: CASE EVENT DATE: 20180101
